FAERS Safety Report 4698119-3 (Version None)
Quarter: 2005Q2

REPORT INFORMATION
  Report Type: 
  Country: None (occurrence: None)
  Receive Date: 20050126
  Receipt Date: 20050126
  Transmission Date: 20051028
  Serious: Yes (Other)
  Sender: FDA-Public Use
  Company Number: None

PATIENT
  Age: 45 Year
  Sex: Female

DRUGS (2)
  1. CLONAZEPAM [Suspect]
     Indication: MAJOR DEPRESSION
     Dosage: 1 MG 3-4 X DAY  RESTARTED BY PREVIOUS MD
  2. CLONAZEPAM [Suspect]
     Indication: POST-TRAUMATIC STRESS DISORDER
     Dosage: 1 MG 3-4 X DAY  RESTARTED BY PREVIOUS MD

REACTIONS (5)
  - ANXIETY [None]
  - DRUG EFFECT INCREASED [None]
  - PANIC REACTION [None]
  - SEDATION [None]
  - THERAPEUTIC RESPONSE UNEXPECTED WITH DRUG SUBSTITUTION [None]
